FAERS Safety Report 23688033 (Version 1)
Quarter: 2024Q1

REPORT INFORMATION
  Report Type: Spontaneous
  Country: GB (occurrence: GB)
  Receive Date: 20240329
  Receipt Date: 20240329
  Transmission Date: 20240410
  Serious: Yes (Disabling)
  Sender: FDA-Public Use
  Company Number: GB-MHRA-MED-202312191925334680-HWFTY

PATIENT
  Age: 47 Year
  Sex: Male
  Weight: 80 kg

DRUGS (1)
  1. CITALOPRAM [Suspect]
     Active Substance: CITALOPRAM\CITALOPRAM HYDROBROMIDE
     Indication: Depression
     Dosage: 20MG PER DAY; TABLET
     Route: 065
     Dates: start: 20231210, end: 20231210

REACTIONS (1)
  - Male sexual dysfunction [Not Recovered/Not Resolved]

NARRATIVE: CASE EVENT DATE: 20231210
